FAERS Safety Report 8782940 (Version 1)
Quarter: 2012Q4

REPORT INFORMATION
  Report Type: 
  Country: US (occurrence: US)
  Receive Date: 20120913
  Receipt Date: 20120913
  Transmission Date: 20130627
  Serious: No
  Sender: FDA-Public Use
  Company Number: US-ASTRAZENECA-2012SE69755

PATIENT
  Age: 46 Year
  Sex: Male

DRUGS (12)
  1. NEXIUM [Suspect]
     Route: 048
  2. AZOR [Concomitant]
  3. PERCOCET [Concomitant]
     Indication: PAIN
  4. FLEXERIL [Concomitant]
     Indication: MYALGIA
  5. TRAZODONE HCL [Concomitant]
  6. KLONOPIN [Concomitant]
     Indication: ANXIETY
  7. DAYPRO [Concomitant]
  8. LEVITRA [Concomitant]
  9. PREVACID [Concomitant]
  10. ZOFRAN [Concomitant]
  11. CELEXA [Concomitant]
  12. PROMETHAZINE HCL [Concomitant]
     Indication: NAUSEA

REACTIONS (4)
  - Anxiety [Unknown]
  - Panic attack [Unknown]
  - Diverticulitis [Unknown]
  - Abdominal discomfort [Unknown]
